FAERS Safety Report 4696157-8 (Version None)
Quarter: 2005Q2

REPORT INFORMATION
  Report Type: 
  Country: None (occurrence: None)
  Receive Date: 20050621
  Receipt Date: 20050609
  Transmission Date: 20051028
  Serious: Yes (Hospitalization)
  Sender: FDA-Public Use
  Company Number: FR-BRISTOL-MYERS SQUIBB COMPANY-12999918

PATIENT
  Age: 80 Year
  Sex: Male

DRUGS (5)
  1. APROVEL TABS 300 MG [Suspect]
     Route: 048
     Dates: start: 19970401
  2. KARDEGIC [Suspect]
  3. ALLOPURINOL [Suspect]
  4. CALDINE [Suspect]
  5. XATRAL LP [Suspect]
     Dates: start: 20041114

REACTIONS (3)
  - ECZEMA [None]
  - EOSINOPHILIA [None]
  - PRURITUS [None]
